FAERS Safety Report 20336810 (Version 7)
Quarter: 2022Q2

REPORT INFORMATION
  Report Type: Report from Study
  Country: CA (occurrence: CA)
  Receive Date: 20220114
  Receipt Date: 20220525
  Transmission Date: 20220721
  Serious: Yes (Other)
  Sender: FDA-Public Use
  Company Number: CA-OTSUKA-2021_029301

PATIENT
  Age: 78 Year
  Sex: Male

DRUGS (3)
  1. CEDAZURIDINE\DECITABINE [Suspect]
     Active Substance: CEDAZURIDINE\DECITABINE
     Indication: Myelodysplastic syndrome
     Dosage: 35/100 MG, 1 TABLET ONCE DAILY ON DAY 1, 3 AND 5 (CYCLE OF 28 DAYS)
     Route: 065
     Dates: start: 20210628
  2. CEDAZURIDINE\DECITABINE [Suspect]
     Active Substance: CEDAZURIDINE\DECITABINE
     Dosage: UNK, (2 DAYS DOSE) DOSE DECREASED
     Route: 065
  3. CEDAZURIDINE\DECITABINE [Suspect]
     Active Substance: CEDAZURIDINE\DECITABINE
     Dosage: 3 TABLETS/CYCLE INSTEAD OF 2
     Route: 065

REACTIONS (9)
  - Platelet transfusion [Unknown]
  - Transfusion [Unknown]
  - Blood product transfusion dependent [Unknown]
  - White blood cell count decreased [Unknown]
  - Neutropenia [Unknown]
  - Full blood count decreased [Unknown]
  - General physical health deterioration [Unknown]
  - Eastern Cooperative Oncology Group performance status worsened [Unknown]
  - Product use issue [Unknown]

NARRATIVE: CASE EVENT DATE: 20211230
